FAERS Safety Report 20032179 (Version 1)
Quarter: 2021Q4

REPORT INFORMATION
  Report Type: Spontaneous
  Country: None (occurrence: US)
  Receive Date: 20211103
  Receipt Date: 20211103
  Transmission Date: 20220303
  Serious: Yes (Other)
  Sender: FDA-Public Use
  Company Number: US-Acella Pharmaceuticals, LLC-2120485

PATIENT
  Age: 65 Year
  Sex: Female

DRUGS (1)
  1. PHENYTOIN SODIUM [Suspect]
     Active Substance: PHENYTOIN SODIUM
     Indication: Subdural haematoma
     Route: 065

REACTIONS (1)
  - Erythema multiforme [Recovered/Resolved]
